FAERS Safety Report 15272428 (Version 1)
Quarter: 2018Q3

REPORT INFORMATION
  Report Type: Spontaneous
  Country: US (occurrence: US)
  Receive Date: 20180813
  Receipt Date: 20180813
  Transmission Date: 20181010
  Serious: No
  Sender: FDA-Public Use
  Company Number: US-PFIZER INC-2018322788

PATIENT
  Sex: Female

DRUGS (3)
  1. LYRICA [Suspect]
     Active Substance: PREGABALIN
     Indication: EPILEPSY
     Dosage: 75 UNK, UNK
  2. LYRICA [Suspect]
     Active Substance: PREGABALIN
     Indication: PETIT MAL EPILEPSY
     Dosage: 100 UNK, UNK
  3. LYRICA [Suspect]
     Active Substance: PREGABALIN
     Dosage: 225 UNK, UNK

REACTIONS (3)
  - Drug intolerance [Unknown]
  - Hypersomnia [Unknown]
  - Off label use [Unknown]
